FAERS Safety Report 9480082 (Version 1)
Quarter: 2013Q3

REPORT INFORMATION
  Report Type: Report from Study
  Country: AR (occurrence: AR)
  Receive Date: 20130828
  Receipt Date: 20130828
  Transmission Date: 20140515
  Serious: Yes (Other)
  Sender: FDA-Public Use
  Company Number: AR-ROCHE-1266001

PATIENT
  Sex: Female

DRUGS (1)
  1. RANIBIZUMAB [Suspect]
     Indication: THROMBOSIS
     Route: 050
     Dates: start: 2012

REACTIONS (2)
  - Optic nerve disorder [Unknown]
  - Blindness unilateral [Not Recovered/Not Resolved]
